FAERS Safety Report 4659268-9 (Version None)
Quarter: 2005Q2

REPORT INFORMATION
  Report Type: 
  Country: None (occurrence: None)
  Receive Date: 20050510
  Receipt Date: 20050429
  Transmission Date: 20051028
  Serious: Yes (Other)
  Sender: FDA-Public Use
  Company Number: 2005-0008293

PATIENT
  Age: 19 Year
  Sex: Female

DRUGS (5)
  1. EMTRIVA [Suspect]
  2. VIREAD [Suspect]
  3. RITONAVIR              (RITONAVIR) [Suspect]
  4. PROTHIADEN [Suspect]
     Dosage: ORAL
     Route: 048
  5. ATAZANAVIR (ATAZANAVIR) [Concomitant]

REACTIONS (1)
  - DRUG EXPOSURE DURING PREGNANCY [None]
